FAERS Safety Report 17258548 (Version 1)
Quarter: 2019Q4

REPORT INFORMATION
  Report Type: Spontaneous
  Country: US (occurrence: US)
  Receive Date: 20191217
  Receipt Date: 20191217
  Transmission Date: 20200122
  Serious: Yes (Hospitalization)
  Sender: FDA-Public Use
  Company Number: None

PATIENT
  Age: 51 Year
  Sex: Female

DRUGS (7)
  1. DOK CAP [Concomitant]
  2. METHOTREXATE. [Concomitant]
     Active Substance: METHOTREXATE
  3. CELECOXIB. [Concomitant]
     Active Substance: CELECOXIB
  4. FOLIC ACID. [Concomitant]
     Active Substance: FOLIC ACID
  5. XELJANZ XR [Suspect]
     Active Substance: TOFACITINIB CITRATE
     Indication: RHEUMATOID ARTHRITIS
     Dosage: ?          OTHER DOSE:11 MG ER TAB;?
     Route: 048
     Dates: start: 20190902
  6. PREDNISONE. [Concomitant]
     Active Substance: PREDNISONE
  7. ESTRADIOL. [Concomitant]
     Active Substance: ESTRADIOL

REACTIONS (2)
  - Therapy cessation [None]
  - Knee operation [None]

NARRATIVE: CASE EVENT DATE: 20191101
